FAERS Safety Report 14468083 (Version 1)
Quarter: 2018Q1

REPORT INFORMATION
  Report Type: Spontaneous
  Country: US (occurrence: US)
  Receive Date: 20180131
  Receipt Date: 20180131
  Transmission Date: 20180509
  Serious: No
  Sender: FDA-Public Use
  Company Number: US-PFIZER INC-2018041395

PATIENT
  Age: 39 Year
  Sex: Female
  Weight: 68.4 kg

DRUGS (2)
  1. PRISTIQ EXTENDED-RELEASE [Suspect]
     Active Substance: DESVENLAFAXINE SUCCINATE
     Indication: ANXIETY
     Dosage: 25 MG, UNK (BY CUTTING IN HALF)
     Dates: start: 20180126, end: 20180127
  2. PRISTIQ EXTENDED-RELEASE [Suspect]
     Active Substance: DESVENLAFAXINE SUCCINATE
     Indication: DEPRESSION
     Dosage: 50 MG, 1X/DAY
     Route: 048
     Dates: start: 2015

REACTIONS (5)
  - Dry mouth [Not Recovered/Not Resolved]
  - Withdrawal syndrome [Unknown]
  - Palpitations [Recovering/Resolving]
  - Thirst [Unknown]
  - Wrong technique in product usage process [Unknown]
